FAERS Safety Report 9530122 (Version 1)
Quarter: 2013Q3

REPORT INFORMATION
  Report Type: Spontaneous
  Country: KR (occurrence: KR)
  Receive Date: 20130917
  Receipt Date: 20130917
  Transmission Date: 20140515
  Serious: Yes (Other)
  Sender: FDA-Public Use
  Company Number: KR-BAXTER-2013BAX035874

PATIENT
  Age: 67 Year
  Sex: Male

DRUGS (3)
  1. HOLOXAN INJ 1000MG [Suspect]
     Indication: EPITHELIOID SARCOMA
     Dosage: 5 G/M2
     Route: 065
  2. UROMITEXAN INJ. 200MG [Suspect]
     Indication: EPITHELIOID SARCOMA
     Route: 065
  3. ADRIAMYCIN [Suspect]
     Indication: EPITHELIOID SARCOMA
     Route: 065

REACTIONS (1)
  - Renal tubular disorder [Not Recovered/Not Resolved]
